FAERS Safety Report 6320400-2 (Version None)
Quarter: 2009Q3

REPORT INFORMATION
  Report Type: 
  Country: None (occurrence: None)
  Receive Date: 20090822
  Receipt Date: 20081106
  Transmission Date: 20100115
  Serious: No
  Sender: FDA-Public Use
  Company Number: US-ABBOTT-08P-163-0486176-00

PATIENT
  Sex: Female

DRUGS (2)
  1. NIASPAN [Suspect]
     Indication: DRUG USE FOR UNKNOWN INDICATION
     Dosage: PEACH-COATED FORMULATION
     Route: 048
     Dates: start: 20080101
  2. NIASPAN [Suspect]
     Dosage: WHITE-UNCOATED FORMULATION
     Route: 048

REACTIONS (1)
  - PRURITUS [None]
